FAERS Safety Report 15773149 (Version 1)
Quarter: 2018Q4

REPORT INFORMATION
  Report Type: Other
  Country: CA (occurrence: CA)
  Receive Date: 20181228
  Receipt Date: 20181228
  Transmission Date: 20190205
  Serious: Yes (Other)
  Sender: FDA-Public Use
  Company Number: CA-CELLTRION INC.-2018CA024914

PATIENT

DRUGS (4)
  1. MESALAZINE [Concomitant]
     Active Substance: MESALAMINE
  2. IMURAN [Concomitant]
     Active Substance: AZATHIOPRINE
  3. INFLIXIMAB PFIZER (UNKNOWN) [Suspect]
     Active Substance: INFLIXIMAB
     Indication: CROHN^S DISEASE
     Dosage: 5 MG/KG, UNK [1 EVERY 6 WEEK(S)]
     Route: 042
  4. SULFACETAMIDE SODIUM;SULFUR [Concomitant]
     Active Substance: SULFACETAMIDE SODIUM\SULFUR
     Dosage: UNK

REACTIONS (3)
  - Weight increased [Not Recovered/Not Resolved]
  - Crohn^s disease [Not Recovered/Not Resolved]
  - Stress [Not Recovered/Not Resolved]
